FAERS Safety Report 5319594-7 (Version None)
Quarter: 2007Q2

REPORT INFORMATION
  Report Type: 
  Country: None (occurrence: None)
  Receive Date: 20070502
  Receipt Date: 20070427
  Transmission Date: 20071010
  Serious: Yes (Hospitalization)
  Sender: FDA-Public Use
  Company Number: TCI2007A02090

PATIENT
  Age: 75 Year
  Sex: Male

DRUGS (7)
  1. LANSOPRAZOLE [Suspect]
     Indication: REFLUX OESOPHAGITIS
     Dosage: 15 MG (15 MG, 1 IN 1 D); PER ORAL
     Route: 048
     Dates: start: 20060409, end: 20070416
  2. ASPIRIN [Suspect]
     Dosage: PER ORAL
     Route: 048
  3. BASEN (VOGLIBOSE) (TABLETS) [Concomitant]
  4. SIGMART (NICORANDIL) (UNKNOWN) [Concomitant]
  5. MUCOSTA (REBAMIPIDE) (PREPARATION FOR ORAL USE (NOS)) [Concomitant]
  6. MAINTATE (BISOPROLOL FUMARATE) (TABLETS) [Concomitant]
  7. MAGNESIUM OXIDE (PREPARATION FOR ORAL USE (NOS)) [Concomitant]

REACTIONS (5)
  - C-REACTIVE PROTEIN INCREASED [None]
  - PYREXIA [None]
  - RENAL IMPAIRMENT [None]
  - TUBULOINTERSTITIAL NEPHRITIS [None]
  - UPPER RESPIRATORY TRACT INFLAMMATION [None]
